FAERS Safety Report 10351473 (Version 1)
Quarter: 2014Q3

REPORT INFORMATION
  Report Type: Spontaneous
  Country: DE (occurrence: DE)
  Receive Date: 20140730
  Receipt Date: 20140730
  Transmission Date: 20150326
  Serious: Yes (Other)
  Sender: FDA-Public Use
  Company Number: PHHY2014DE092082

PATIENT

DRUGS (6)
  1. CORTICOSTEROIDS [Suspect]
     Active Substance: CORTICOSTEROID NOS
     Route: 064
  2. AMPICILLIN [Suspect]
     Active Substance: AMPICILLIN
     Route: 064
  3. DEQUALINIUM [Suspect]
     Active Substance: DEQUALINIUM
     Route: 064
  4. METOPROLOL [Suspect]
     Active Substance: METOPROLOL
     Route: 064
  5. OFLOXACIN SANDOZ [Suspect]
     Active Substance: OFLOXACIN
     Route: 064
  6. FENOTEROL [Suspect]
     Active Substance: FENOTEROL
     Route: 064

REACTIONS (3)
  - Foetal exposure during pregnancy [Unknown]
  - Brachydactyly [Unknown]
  - Bone deformity [Unknown]
